FAERS Safety Report 8484476-9 (Version None)
Quarter: 2012Q3

REPORT INFORMATION
  Report Type: 
  Country: None (occurrence: None)
  Receive Date: 20120703
  Receipt Date: 20120629
  Transmission Date: 20120928
  Serious: Yes (Death)
  Sender: FDA-Public Use
  Company Number: PHHY2012AR056375

PATIENT
  Sex: Male

DRUGS (3)
  1. DIOVAN [Suspect]
     Dosage: 80 MG, UNK
  2. INDACATEROL [Suspect]
     Dosage: 150 UG, UNK
  3. EXELON [Suspect]
     Dosage: 9.5 MG/24 HOURS (PATCH 10)
     Route: 062

REACTIONS (2)
  - GENERAL PHYSICAL HEALTH DETERIORATION [None]
  - CHRONIC OBSTRUCTIVE PULMONARY DISEASE [None]
